FAERS Safety Report 4951342-2 (Version None)
Quarter: 2006Q1

REPORT INFORMATION
  Report Type: 
  Country: None (occurrence: None)
  Receive Date: 20060317
  Receipt Date: 20060307
  Transmission Date: 20060701
  Serious: Yes (Hospitalization)
  Sender: FDA-Public Use
  Company Number: 200512122GDS

PATIENT
  Age: 78 Year
  Sex: Female

DRUGS (6)
  1. ASPIRIN [Suspect]
     Indication: ANGINA PECTORIS
     Dosage: 100 MG, TOTAL DAILY, ORAL
     Route: 048
     Dates: end: 20030504
  2. ASPIRIN [Suspect]
     Indication: ANGINA PECTORIS
     Dosage: 100 MG, TOTAL DAILY, ORAL
     Route: 048
     Dates: start: 20030508
  3. WARFARIN [Suspect]
     Indication: ANGINA PECTORIS
     Dosage: 1.5 MG, TOTAL DAILY, ORAL
     Route: 048
     Dates: start: 19960101, end: 20030504
  4. WARFARIN [Suspect]
     Indication: ANGINA PECTORIS
     Dosage: 1.5 MG, TOTAL DAILY, ORAL
     Route: 048
     Dates: start: 20030508
  5. PARAMIDIN (BUCOLOME) [Suspect]
     Indication: HYPERURICAEMIA
     Dosage: 300 MG, TOTAL DAILY, ORAL
     Route: 048
     Dates: start: 19960101, end: 20030504
  6. PARAMIDIN (BUCOLOME) [Suspect]
     Indication: HYPERURICAEMIA
     Dosage: 300 MG, TOTAL DAILY, ORAL
     Route: 048
     Dates: start: 20030508

REACTIONS (7)
  - ANAEMIA [None]
  - ANORECTAL DISORDER [None]
  - CAPILLARY DISORDER [None]
  - LARGE INTESTINAL HAEMORRHAGE [None]
  - MELAENA [None]
  - RECTAL HAEMORRHAGE [None]
  - THROMBOSIS [None]
